FAERS Safety Report 9621241 (Version 2)
Quarter: 2013Q4

REPORT INFORMATION
  Report Type: Report from Study
  Country: CA (occurrence: CA)
  Receive Date: 20131015
  Receipt Date: 20131113
  Transmission Date: 20140711
  Serious: Yes (Other)
  Sender: FDA-Public Use
  Company Number: CA-JNJFOC-20131007001

PATIENT
  Age: 43 Year
  Sex: Male
  Weight: 102 kg

DRUGS (4)
  1. REMICADE [Suspect]
     Indication: CROHN^S DISEASE
     Route: 042
     Dates: start: 200801
  2. CIPRO [Concomitant]
     Dosage: DOSAGE UNIT: MG
     Route: 065
  3. FLAGYL [Concomitant]
     Dosage: DOSAGE UNIT: MG
     Route: 065
  4. 6MP [Concomitant]
     Dosage: DOSAGE UNIT: MG
     Route: 065

REACTIONS (1)
  - Lymphoma [Unknown]
